FAERS Safety Report 8557150-8 (Version None)
Quarter: 2012Q3

REPORT INFORMATION
  Report Type: 
  Country: None (occurrence: None)
  Receive Date: 20120801
  Receipt Date: 20120725
  Transmission Date: 20120928
  Serious: Yes (Death, Hospitalization)
  Sender: FDA-Public Use
  Company Number: FR-PFIZER INC-2012180220

PATIENT
  Age: 70 Year
  Sex: Male

DRUGS (13)
  1. PANTOPRAZOLE [Suspect]
     Indication: PROPHYLAXIS
     Dosage: 80 MG, DAILY
     Route: 042
     Dates: start: 20120705
  2. ACUPAN [Suspect]
     Dosage: 80MG
     Route: 042
     Dates: start: 20120706, end: 20120707
  3. ASPIRIN [Concomitant]
  4. ACETAMINOPHEN [Suspect]
     Dosage: 1 G, 3X/DAY
     Route: 042
     Dates: start: 20120705, end: 20120705
  5. TENORMIN [Concomitant]
     Indication: HYPERTENSION
     Dosage: 10 MG, UNK
     Route: 042
     Dates: start: 20120705, end: 20120705
  6. ACETAMINOPHEN [Suspect]
     Dosage: 1 G, 1X/DAY
     Route: 042
     Dates: start: 20120706, end: 20120706
  7. RAMIPRIL [Concomitant]
  8. ACUPAN [Suspect]
     Indication: PAIN
     Dosage: 160 MG, DAILY
     Route: 042
     Dates: start: 20120705, end: 20120705
  9. ACETAMINOPHEN [Suspect]
     Dosage: 3 GM (1 GM,3 IN 1 D)
     Route: 042
     Dates: start: 20120707, end: 20120707
  10. SINTROM [Concomitant]
  11. PROPRANOLOL [Concomitant]
     Indication: HYPERTENSION
     Dosage: 5 MG, UNK
     Route: 042
     Dates: start: 20120707, end: 20120707
  12. BISOPROLOL FUMARATE [Concomitant]
  13. ATORVASTATIN [Concomitant]

REACTIONS (4)
  - ASPHYXIA [None]
  - RESPIRATORY ARREST [None]
  - ANAPHYLACTIC SHOCK [None]
  - BLOOD PRESSURE INCREASED [None]
